FAERS Safety Report 9026025 (Version 1)
Quarter: 2013Q1

REPORT INFORMATION
  Report Type: Spontaneous
  Country: MX (occurrence: MX)
  Receive Date: 20130122
  Receipt Date: 20130122
  Transmission Date: 20140127
  Serious: Yes (Hospitalization, Other)
  Sender: FDA-Public Use
  Company Number: PHHY2013MX005070

PATIENT
  Age: 92 Year
  Sex: Female

DRUGS (3)
  1. EXELON PATCH [Suspect]
     Indication: DEMENTIA ALZHEIMER^S TYPE
     Dosage: 9.5 MG, 1(10CM2/9.5MG)
     Route: 062
     Dates: start: 201107
  2. TAFIL [Concomitant]
     Indication: DEPRESSION
     Dosage: 0.5 UKN, UNK
     Dates: start: 201107
  3. SEROQUEL [Concomitant]
     Indication: DEPRESSION
     Dosage: 0.5 UKN, UNK
     Dates: start: 201107

REACTIONS (7)
  - Cerebrovascular accident [Recovered/Resolved]
  - Neoplasm malignant [Not Recovered/Not Resolved]
  - Ankle fracture [Unknown]
  - Fall [Unknown]
  - Disorientation [Unknown]
  - Confusional state [Unknown]
  - Depression [Not Recovered/Not Resolved]
